FAERS Safety Report 7421611-5 (Version None)
Quarter: 2011Q2

REPORT INFORMATION
  Report Type: 
  Country: None (occurrence: None)
  Receive Date: 20110408
  Receipt Date: 20110405
  Transmission Date: 20111010
  Serious: Yes (Death)
  Sender: FDA-Public Use
  Company Number: 1000019288

PATIENT
  Age: 53 Year
  Sex: Male

DRUGS (11)
  1. NAFAZODONE [Concomitant]
  2. XANAX [Concomitant]
  3. LEXAPRO [Suspect]
     Indication: POST-TRAUMATIC STRESS DISORDER
     Dosage: ORAL; 30 (30 MG, 1 IN 1 D), ORAL;
     Route: 048
  4. CAMPRAL [Concomitant]
  5. ZYRTEC (CEITRIZINE) [Concomitant]
  6. TRILEPTAL [Concomitant]
  7. ROBITUSSIN DM (DEXTROMETHORPHAN, GUAFENESIN) [Concomitant]
  8. LAMICTAL [Concomitant]
  9. FLONASE [Concomitant]
  10. FLOVENT HFA (FLUTICASONE PROPIONATE) [Concomitant]
  11. ALBUTEROL HFA (SALBUTAMOL) [Concomitant]

REACTIONS (5)
  - PNEUMONIA [None]
  - ACCIDENTAL OVERDOSE [None]
  - BRONCHOSPASM [None]
  - ASTHMA [None]
  - TOXICITY TO VARIOUS AGENTS [None]
